FAERS Safety Report 10782368 (Version 1)
Quarter: 2015Q1

REPORT INFORMATION
  Report Type: Spontaneous
  Country: PL (occurrence: PL)
  Receive Date: 20150210
  Receipt Date: 20150210
  Transmission Date: 20150721
  Serious: Yes (Other)
  Sender: FDA-Public Use
  Company Number: PL-BAXTER-2015BAX003017

PATIENT
  Age: 37 Year
  Sex: Male

DRUGS (1)
  1. KIOVIG [Suspect]
     Active Substance: HUMAN IMMUNOGLOBULIN G
     Indication: GUILLAIN-BARRE SYNDROME
     Dosage: AT CONVENTIONAL DOSES
     Route: 042

REACTIONS (8)
  - Pneumonia [Recovered/Resolved]
  - Epididymitis [Recovered/Resolved]
  - Nosocomial infection [Recovered/Resolved]
  - Drug ineffective [Not Recovered/Not Resolved]
  - Urinary tract infection [Recovered/Resolved]
  - Sepsis [Recovered/Resolved]
  - Urinary tract infection fungal [Unknown]
  - Candida infection [Unknown]
